FAERS Safety Report 4586770-0 (Version None)
Quarter: 2005Q1

REPORT INFORMATION
  Report Type: 
  Country: None (occurrence: None)
  Receive Date: 20050214
  Receipt Date: 20050131
  Transmission Date: 20050727
  Serious: Yes (Hospitalization, Other)
  Sender: FDA-Public Use
  Company Number: 2004101615

PATIENT
  Age: 84 Year
  Sex: Male

DRUGS (11)
  1. TIKOSYN [Suspect]
     Indication: ATRIAL FIBRILLATION
     Dosage: 750 MG (125 MCG, TWICE A DAY, ORAL ; 2 OR 3 YEARS AGO
     Route: 048
  2. TIKOSYN [Suspect]
     Indication: ATRIAL FLUTTER
     Dosage: 750 MG (125 MCG, TWICE A DAY, ORAL ; 2 OR 3 YEARS AGO
     Route: 048
  3. HYDROCHLOROTHIAZIDE [Suspect]
     Indication: JOINT SWELLING
     Dosage: 25 MG (25 MG, EVERY DAY_, ORAL
     Route: 048
  4. OXYGEN (OXYGEN) [Concomitant]
  5. CLOPIDOGREL BISULFATE [Concomitant]
  6. CITALOPRAM HYDROBROMIDE [Concomitant]
  7. ATORVASTATIN (ATORVASTATIN) [Concomitant]
  8. LORAZEPAM [Concomitant]
  9. PREDNISONE [Concomitant]
  10. ACETYLSALICYLIC ACID SRT [Concomitant]
  11. ACETAMINOPHEN [Concomitant]

REACTIONS (14)
  - ANAEMIA [None]
  - ASTHENIA [None]
  - ATRIAL FLUTTER [None]
  - BUNDLE BRANCH BLOCK RIGHT [None]
  - CHRONIC OBSTRUCTIVE PULMONARY DISEASE [None]
  - CONDITION AGGRAVATED [None]
  - DISEASE RECURRENCE [None]
  - DRUG INTERACTION [None]
  - EMOTIONAL DISTRESS [None]
  - FALL [None]
  - GAIT DISTURBANCE [None]
  - JOINT SWELLING [None]
  - MEDICATION ERROR [None]
  - RESPIRATORY DISORDER [None]
